FAERS Safety Report 20666611 (Version 3)
Quarter: 2022Q2

REPORT INFORMATION
  Report Type: Spontaneous
  Country: US (occurrence: US)
  Receive Date: 20220403
  Receipt Date: 20220429
  Transmission Date: 20220721
  Serious: Yes (Other)
  Sender: FDA-Public Use
  Company Number: US-drreddys-SPO/USA/22/0148151

PATIENT
  Age: 19 Year
  Sex: Female

DRUGS (1)
  1. CETIRIZINE [Suspect]
     Active Substance: CETIRIZINE HYDROCHLORIDE
     Indication: Mast cell activation syndrome

REACTIONS (6)
  - Condition aggravated [Unknown]
  - Mast cell activation syndrome [Unknown]
  - Drug intolerance [Recovered/Resolved]
  - Condition aggravated [Recovering/Resolving]
  - Cognitive disorder [Recovering/Resolving]
  - Cerebral disorder [Recovering/Resolving]
